FAERS Safety Report 23497835 (Version 1)
Quarter: 2024Q1

REPORT INFORMATION
  Report Type: Spontaneous
  Country: US (occurrence: None)
  Receive Date: 20240207
  Receipt Date: 20240207
  Transmission Date: 20240410
  Serious: No
  Sender: FDA-Public Use
  Company Number: US-ROCHE-3312111

PATIENT
  Age: 42 Year
  Sex: Male

DRUGS (7)
  1. XOLAIR [Suspect]
     Active Substance: OMALIZUMAB
     Indication: Urticaria chronic
     Route: 065
     Dates: start: 20140101
  2. WELLBUTRIN [Concomitant]
     Active Substance: BUPROPION HYDROCHLORIDE
  3. KLONOPIN [Concomitant]
     Active Substance: CLONAZEPAM
  4. PROPRANOLOL [Concomitant]
     Active Substance: PROPRANOLOL HYDROCHLORIDE
  5. KETAMINE [Concomitant]
     Active Substance: KETAMINE
  6. MONTELUKAST [Concomitant]
     Active Substance: MONTELUKAST SODIUM
  7. LUNESTA [Concomitant]
     Active Substance: ESZOPICLONE

REACTIONS (2)
  - Pain [Unknown]
  - Off label use [Unknown]
